FAERS Safety Report 6889995-4 (Version None)
Quarter: 2010Q3

REPORT INFORMATION
  Report Type: 
  Country: None (occurrence: None)
  Receive Date: 20100730
  Receipt Date: 20080702
  Transmission Date: 20110219
  Serious: No
  Sender: FDA-Public Use
  Company Number: US-PFIZER INC-2008054402

PATIENT
  Sex: Male
  Weight: 100 kg

DRUGS (2)
  1. LIPITOR [Suspect]
     Indication: BLOOD CHOLESTEROL INCREASED
     Dates: start: 20070601
  2. WARFARIN SODIUM [Concomitant]

REACTIONS (1)
  - BLOOD CHOLESTEROL INCREASED [None]
